FAERS Safety Report 6850861-1 (Version None)
Quarter: 2010Q3

REPORT INFORMATION
  Report Type: 
  Country: None (occurrence: None)
  Receive Date: 20100716
  Receipt Date: 20071116
  Transmission Date: 20110219
  Serious: Yes (Hospitalization, Other)
  Sender: FDA-Public Use
  Company Number: US-PFIZER INC-2007089007

PATIENT
  Sex: Female
  Weight: 53.181 kg

DRUGS (4)
  1. CHANTIX [Suspect]
     Indication: SMOKING CESSATION THERAPY
     Route: 048
     Dates: start: 20070821, end: 20070926
  2. PROTONIX [Concomitant]
  3. SYNTHROID [Concomitant]
     Indication: THYROID DISORDER
     Route: 048
  4. IMITREX [Concomitant]
     Indication: MIGRAINE
     Route: 048

REACTIONS (12)
  - ANXIETY [None]
  - BLOOD CALCIUM DECREASED [None]
  - BLOOD POTASSIUM DECREASED [None]
  - BLOOD UREA DECREASED [None]
  - DECREASED APPETITE [None]
  - DEPRESSION [None]
  - INSOMNIA [None]
  - NAUSEA [None]
  - NEUTROPHIL COUNT INCREASED [None]
  - NIGHTMARE [None]
  - SUICIDAL IDEATION [None]
  - TREMOR [None]
